FAERS Safety Report 5626825-2 (Version None)
Quarter: 2008Q1

REPORT INFORMATION
  Report Type: 
  Country: None (occurrence: None)
  Receive Date: 20080214
  Receipt Date: 20080206
  Transmission Date: 20080703
  Serious: Yes (Hospitalization)
  Sender: FDA-Public Use
  Company Number: US-GENENTECH-234559

PATIENT
  Age: 61 Year
  Sex: Female
  Weight: 55.8 kg

DRUGS (18)
  1. BEVACIZUMAB [Suspect]
     Indication: BREAST CANCER
     Dosage: 558 MG, UNK
     Route: 042
     Dates: start: 20061017
  2. ADRIAMYCIN PFS [Suspect]
     Indication: BREAST CANCER
     Dosage: 94 MG, UNK
     Route: 042
     Dates: start: 20061017
  3. CYTOXAN [Suspect]
     Indication: BREAST CANCER
     Dosage: 942 MG, UNK
     Route: 042
     Dates: start: 20061017
  4. NEULASTA [Suspect]
     Indication: PROPHYLAXIS
     Dosage: 6 MG, UNK
     Route: 058
     Dates: start: 20061018, end: 20061101
  5. AMBIEN [Concomitant]
     Indication: INSOMNIA
     Dosage: 10 MG, PRN
     Route: 048
     Dates: start: 20050101
  6. HYDROCHLOROTHIAZIDE [Concomitant]
     Indication: HYPERTENSION
     Route: 048
     Dates: start: 20050101
  7. POTASSIUM CHLORIDE [Concomitant]
     Indication: MEDICAL DIET
     Dosage: 1 TABLET, UNK
     Route: 048
     Dates: start: 20050101
  8. NAPROXEN [Concomitant]
     Indication: ARTHRALGIA
     Dosage: 500 MG, UNK
     Route: 048
     Dates: start: 20050101
  9. PREVACID [Concomitant]
     Indication: PEPTIC ULCER
     Dosage: 30 MG, UNK
     Route: 048
     Dates: start: 20050101
  10. M.V.I. [Concomitant]
     Indication: VITAMIN SUPPLEMENTATION
     Route: 048
     Dates: start: 20050101
  11. CALCIUM [Concomitant]
     Indication: MINERAL SUPPLEMENTATION
     Dosage: 1200 MG, UNK
     Route: 048
     Dates: start: 20050101
  12. DOCUSATE [Concomitant]
     Indication: HAEMORRHOIDS
     Dosage: 50 MG, UNK
     Route: 048
     Dates: start: 20050101
  13. DOCUSATE [Concomitant]
     Indication: CONSTIPATION
  14. FLEXICOSE [Concomitant]
     Indication: ARTHRALGIA
     Route: 048
     Dates: start: 20050101
  15. LEVAQUIN [Concomitant]
     Indication: PYREXIA
     Route: 048
     Dates: start: 20061024, end: 20061031
  16. ALOXI [Concomitant]
     Indication: PROPHYLAXIS
     Route: 042
     Dates: start: 20061017
  17. DECADRON [Concomitant]
     Indication: PROPHYLAXIS
     Route: 042
     Dates: start: 20061017
  18. ATIVAN [Concomitant]
     Indication: PROPHYLAXIS
     Dates: start: 20061017

REACTIONS (2)
  - FEBRILE NEUTROPENIA [None]
  - LIVER FUNCTION TEST ABNORMAL [None]
